FAERS Safety Report 10024076 (Version 1)
Quarter: 2014Q1

REPORT INFORMATION
  Report Type: Spontaneous
  Country: GB (occurrence: None)
  Receive Date: 20140124
  Receipt Date: 20140124
  Transmission Date: 20141002
  Serious: Yes (Other)
  Sender: FDA-Public Use
  Company Number: KAD201308-001020

PATIENT
  Age: 43 Year
  Sex: Male

DRUGS (3)
  1. RIBAVIRIN [Suspect]
     Indication: HEPATITIS C
     Dosage: TWICE DAILY, ORAL
     Route: 048
     Dates: start: 20121019
  2. INCIVO (TELAPREVIR) [Suspect]
     Indication: HEPATITIS C
     Dosage: TABLET, 750MG, THRICE DAILY
     Route: 048
     Dates: start: 20121019
  3. PEGINTERFERON ALFA-2B (PEGINTERFERON ALFA-2B) [Suspect]
     Indication: HEPATITIS C
     Dosage: INJECTION, SUBCUTANEOUS
     Dates: start: 20121019

REACTIONS (1)
  - Fluid retention [None]
